FAERS Safety Report 8410965-9 (Version None)
Quarter: 2012Q2

REPORT INFORMATION
  Report Type: 
  Country: None (occurrence: None)
  Receive Date: 20120605
  Receipt Date: 20120524
  Transmission Date: 20120825
  Serious: No
  Sender: FDA-Public Use
  Company Number: US-TEVA-340370USA

PATIENT
  Sex: Female
  Weight: 70.37 kg

DRUGS (7)
  1. MODAFINIL [Concomitant]
  2. LISINOPRIL [Concomitant]
  3. OXCARBAZEPINE [Concomitant]
     Dosage: 300 MILLIGRAM;
  4. ERGOCALCIFEROL [Concomitant]
  5. NORTRIPTYLINE HCL [Concomitant]
     Indication: TRIGEMINAL NEURALGIA
  6. COPAXONE [Suspect]
     Indication: MULTIPLE SCLEROSIS
     Dosage: 20 MILLIEQUIVALENTS;
     Route: 058
  7. VENLAFAXINE HYDROCHLORIDE [Concomitant]

REACTIONS (1)
  - INJECTION SITE ERYTHEMA [None]
